FAERS Safety Report 5746392-2 (Version None)
Quarter: 2008Q2

REPORT INFORMATION
  Report Type: 
  Country: None (occurrence: None)
  Receive Date: 20080522
  Receipt Date: 20080520
  Transmission Date: 20081010
  Serious: Yes (Hospitalization)
  Sender: FDA-Public Use
  Company Number: US-WYE-H04175908

PATIENT
  Age: 36 Year
  Sex: Female
  Weight: 62.7 kg

DRUGS (3)
  1. MYLOTARG [Suspect]
     Indication: ACUTE MYELOID LEUKAEMIA
     Dosage: 9.6 MG
     Route: 042
     Dates: start: 20080503
  2. DAUNORUBICIN HCL [Suspect]
     Indication: ACUTE MYELOID LEUKAEMIA
     Dosage: 216 MG
     Dates: start: 20080501
  3. CYTARABINE [Suspect]
     Indication: ACUTE MYELOID LEUKAEMIA
     Dosage: 1120 MG
     Dates: start: 20080505

REACTIONS (2)
  - PNEUMONIA [None]
  - RESPIRATORY FAILURE [None]
